FAERS Safety Report 6823845-7 (Version None)
Quarter: 2010Q3

REPORT INFORMATION
  Report Type: 
  Country: None (occurrence: None)
  Receive Date: 20100708
  Receipt Date: 20060908
  Transmission Date: 20110219
  Serious: No
  Sender: FDA-Public Use
  Company Number: US-PFIZER INC-2006110583

PATIENT
  Sex: Female
  Weight: 77.11 kg

DRUGS (9)
  1. CHANTIX [Suspect]
     Indication: EX-TOBACCO USER
     Route: 048
     Dates: start: 20060801
  2. FOSAMAX [Concomitant]
  3. AVALIDE [Concomitant]
  4. ATENOLOL [Concomitant]
  5. SPIRIVA [Concomitant]
  6. WELLBUTRIN [Concomitant]
  7. PLAVIX [Concomitant]
  8. LIPITOR [Concomitant]
  9. ACETYLSALICYLIC ACID [Concomitant]

REACTIONS (1)
  - NAUSEA [None]
